FAERS Safety Report 16746950 (Version 2)
Quarter: 2020Q4

REPORT INFORMATION
  Report Type: Spontaneous
  Country: US (occurrence: US)
  Receive Date: 20190827
  Receipt Date: 20201008
  Transmission Date: 20210113
  Serious: No
  Sender: FDA-Public Use
  Company Number: US-SA-2019SA235666

PATIENT

DRUGS (3)
  1. LOSARTAN POTASSIUM. [Concomitant]
     Active Substance: LOSARTAN POTASSIUM
  2. EUCRISA [Concomitant]
     Active Substance: CRISABOROLE
  3. DUPIXENT [Suspect]
     Active Substance: DUPILUMAB
     Indication: DERMATITIS ATOPIC
     Dosage: 300 MG, QOW
     Route: 058
     Dates: start: 20180620

REACTIONS (5)
  - Rash [Unknown]
  - Dermatitis atopic [Unknown]
  - Eye pruritus [Unknown]
  - Erythema [Unknown]
  - Pruritus [Unknown]
